FAERS Safety Report 14424999 (Version 1)
Quarter: 2018Q1

REPORT INFORMATION
  Report Type: Spontaneous
  Country: IN (occurrence: IN)
  Receive Date: 20180123
  Receipt Date: 20180123
  Transmission Date: 20180509
  Serious: Yes (Hospitalization)
  Sender: FDA-Public Use
  Company Number: IN-LANNETT COMPANY, INC.-IN-2018LAN000018

PATIENT
  Age: 26 Year
  Sex: Female

DRUGS (4)
  1. DIPHENOXYLATE HCL; ATROPINE SULFATE [Suspect]
     Active Substance: ATROPINE SULFATE\DIPHENOXYLATE HYDROCHLORIDE
     Indication: CHEMICAL POISONING
     Dosage: 10 ML/HOUR (REPEATED BOLUS)
     Route: 040
  2. DIPHENOXYLATE HCL; ATROPINE SULFATE [Suspect]
     Active Substance: ATROPINE SULFATE\DIPHENOXYLATE HYDROCHLORIDE
     Dosage: 10 MG, (COMPLETE ATROPINISATION)
     Route: 040
  3. PRALIDOXIME [Concomitant]
     Indication: PRODUCT USED FOR UNKNOWN INDICATION
     Dosage: 1 GM IN 100ML OF NORMAL SALINE/ EVERY 8 HOUR
     Route: 042
  4. DIPHENOXYLATE HCL; ATROPINE SULFATE [Suspect]
     Active Substance: ATROPINE SULFATE\DIPHENOXYLATE HYDROCHLORIDE
     Dosage: TAPERING DOSE TO ABOUT 0.5ML/HR
     Route: 040

REACTIONS (1)
  - Substance-induced psychotic disorder [Recovering/Resolving]
